FAERS Safety Report 24657574 (Version 2)
Quarter: 2024Q4

REPORT INFORMATION
  Report Type: Spontaneous
  Country: JP (occurrence: JP)
  Receive Date: 20241125
  Receipt Date: 20241206
  Transmission Date: 20250114
  Serious: Yes (Other)
  Sender: ALEXION PHARMACEUTICALS
  Company Number: JP-ASTRAZENECA-240129479_061310_P_1

PATIENT
  Age: 89 Year
  Weight: 41 kg

DRUGS (66)
  1. CRESTOR [Suspect]
     Active Substance: ROSUVASTATIN CALCIUM
     Dosage: 2.5 MILLIGRAM
  2. CRESTOR [Suspect]
     Active Substance: ROSUVASTATIN CALCIUM
     Dosage: 2.5 MILLIGRAM
  3. CRESTOR [Suspect]
     Active Substance: ROSUVASTATIN CALCIUM
     Dosage: 2.5 MILLIGRAM
  4. CRESTOR [Suspect]
     Active Substance: ROSUVASTATIN CALCIUM
     Dosage: 2.5 MILLIGRAM
  5. CRESTOR [Suspect]
     Active Substance: ROSUVASTATIN CALCIUM
     Dosage: 2.5 MILLIGRAM
  6. CRESTOR [Suspect]
     Active Substance: ROSUVASTATIN CALCIUM
     Dosage: 2.5 MILLIGRAM
  7. CRESTOR [Suspect]
     Active Substance: ROSUVASTATIN CALCIUM
     Dosage: 2.5 MILLIGRAM
  8. CRESTOR [Suspect]
     Active Substance: ROSUVASTATIN CALCIUM
     Dosage: 2.5 MILLIGRAM
  9. NEXIUM [Suspect]
     Active Substance: ESOMEPRAZOLE MAGNESIUM
     Dosage: BEFORE BEDTIME
  10. NEXIUM [Suspect]
     Active Substance: ESOMEPRAZOLE MAGNESIUM
     Dosage: BEFORE BEDTIME
  11. NEXIUM [Suspect]
     Active Substance: ESOMEPRAZOLE MAGNESIUM
     Dosage: BEFORE BEDTIME
  12. NEXIUM [Suspect]
     Active Substance: ESOMEPRAZOLE MAGNESIUM
     Dosage: BEFORE BEDTIME
  13. NEXIUM [Suspect]
     Active Substance: ESOMEPRAZOLE MAGNESIUM
     Dosage: BEFORE BEDTIME
  14. NEXIUM [Suspect]
     Active Substance: ESOMEPRAZOLE MAGNESIUM
     Dosage: BEFORE BEDTIME
  15. NEXIUM [Suspect]
     Active Substance: ESOMEPRAZOLE MAGNESIUM
     Dosage: BEFORE BEDTIME
  16. NEXIUM [Suspect]
     Active Substance: ESOMEPRAZOLE MAGNESIUM
     Dosage: BEFORE BEDTIME
  17. CARVEDILOL [Concomitant]
     Active Substance: CARVEDILOL
     Dosage: 2.5 MILLIGRAM
  18. CARVEDILOL [Concomitant]
     Active Substance: CARVEDILOL
     Dosage: 2.5 MILLIGRAM
  19. CARVEDILOL [Concomitant]
     Active Substance: CARVEDILOL
     Dosage: 2.5 MILLIGRAM
  20. CARVEDILOL [Concomitant]
     Active Substance: CARVEDILOL
     Dosage: 2.5 MILLIGRAM
  21. CARVEDILOL [Concomitant]
     Active Substance: CARVEDILOL
  22. CARVEDILOL [Concomitant]
     Active Substance: CARVEDILOL
  23. CARVEDILOL [Concomitant]
     Active Substance: CARVEDILOL
  24. CARVEDILOL [Concomitant]
     Active Substance: CARVEDILOL
  25. SPIRONOLACTONE [Concomitant]
     Active Substance: SPIRONOLACTONE
     Dosage: 25 MILLIGRAM
  26. SPIRONOLACTONE [Concomitant]
     Active Substance: SPIRONOLACTONE
     Dosage: 25 MILLIGRAM
  27. SPIRONOLACTONE [Concomitant]
     Active Substance: SPIRONOLACTONE
     Dosage: 25 MILLIGRAM
  28. SPIRONOLACTONE [Concomitant]
     Active Substance: SPIRONOLACTONE
     Dosage: 25 MILLIGRAM
  29. SPIRONOLACTONE [Concomitant]
     Active Substance: SPIRONOLACTONE
  30. SPIRONOLACTONE [Concomitant]
     Active Substance: SPIRONOLACTONE
  31. SPIRONOLACTONE [Concomitant]
     Active Substance: SPIRONOLACTONE
  32. SPIRONOLACTONE [Concomitant]
     Active Substance: SPIRONOLACTONE
  33. ASPIRIN [Concomitant]
     Active Substance: ASPIRIN
     Dosage: 100 MILLIGRAM
  34. ASPIRIN [Concomitant]
     Active Substance: ASPIRIN
     Dosage: 100 MILLIGRAM
  35. ASPIRIN [Concomitant]
     Active Substance: ASPIRIN
     Dosage: 100 MILLIGRAM
  36. ASPIRIN [Concomitant]
     Active Substance: ASPIRIN
     Dosage: 100 MILLIGRAM
  37. ASPIRIN [Concomitant]
     Active Substance: ASPIRIN
  38. ASPIRIN [Concomitant]
     Active Substance: ASPIRIN
  39. ASPIRIN [Concomitant]
     Active Substance: ASPIRIN
  40. ASPIRIN [Concomitant]
     Active Substance: ASPIRIN
  41. BAZEDOXIFENE [Concomitant]
     Active Substance: BAZEDOXIFENE
     Dosage: AFTER BREAKFAST
  42. BAZEDOXIFENE [Concomitant]
     Active Substance: BAZEDOXIFENE
     Dosage: AFTER BREAKFAST
  43. BAZEDOXIFENE [Concomitant]
     Active Substance: BAZEDOXIFENE
     Dosage: AFTER BREAKFAST
  44. BAZEDOXIFENE [Concomitant]
     Active Substance: BAZEDOXIFENE
     Dosage: AFTER BREAKFAST
  45. BAZEDOXIFENE [Concomitant]
     Active Substance: BAZEDOXIFENE
     Dosage: AFTER BREAKFAST
  46. BAZEDOXIFENE [Concomitant]
     Active Substance: BAZEDOXIFENE
     Dosage: AFTER BREAKFAST
  47. BAZEDOXIFENE [Concomitant]
     Active Substance: BAZEDOXIFENE
     Dosage: AFTER BREAKFAST
  48. BAZEDOXIFENE [Concomitant]
     Active Substance: BAZEDOXIFENE
     Dosage: AFTER BREAKFAST
  49. SACUBITRIL\VALSARTAN [Concomitant]
     Active Substance: SACUBITRIL\VALSARTAN
     Dosage: AFTER BREAKFAST AND EVENING MEAL
  50. SACUBITRIL\VALSARTAN [Concomitant]
     Active Substance: SACUBITRIL\VALSARTAN
     Dosage: AFTER BREAKFAST AND EVENING MEAL
  51. SODIUM FERROUS CITRATE [Concomitant]
     Active Substance: SODIUM FERROUS CITRATE
     Dosage: AFTER EVENING MEAL
  52. SODIUM FERROUS CITRATE [Concomitant]
     Active Substance: SODIUM FERROUS CITRATE
     Dosage: AFTER EVENING MEAL
  53. SODIUM FERROUS CITRATE [Concomitant]
     Active Substance: SODIUM FERROUS CITRATE
     Dosage: AFTER EVENING MEAL
  54. SODIUM FERROUS CITRATE [Concomitant]
     Active Substance: SODIUM FERROUS CITRATE
     Dosage: AFTER EVENING MEAL
  55. SODIUM FERROUS CITRATE [Concomitant]
     Active Substance: SODIUM FERROUS CITRATE
     Dosage: AFTER EVENING MEAL
  56. SODIUM FERROUS CITRATE [Concomitant]
     Active Substance: SODIUM FERROUS CITRATE
     Dosage: AFTER EVENING MEAL
  57. SODIUM FERROUS CITRATE [Concomitant]
     Active Substance: SODIUM FERROUS CITRATE
     Dosage: AFTER EVENING MEAL
  58. SODIUM FERROUS CITRATE [Concomitant]
     Active Substance: SODIUM FERROUS CITRATE
     Dosage: AFTER EVENING MEAL
  59. NIFEDIPINE [Concomitant]
     Active Substance: NIFEDIPINE
     Dosage: AFTER BREAKFAST AND EVENING MEAL
  60. NIFEDIPINE [Concomitant]
     Active Substance: NIFEDIPINE
     Dosage: AFTER BREAKFAST AND EVENING MEAL
  61. SACUBITRIL\VALSARTAN [Concomitant]
     Active Substance: SACUBITRIL\VALSARTAN
     Dosage: AFTER BREAKFAST AND EVENING MEAL
  62. SACUBITRIL\VALSARTAN [Concomitant]
     Active Substance: SACUBITRIL\VALSARTAN
     Dosage: AFTER BREAKFAST AND EVENING MEAL
  63. SACUBITRIL\VALSARTAN [Concomitant]
     Active Substance: SACUBITRIL\VALSARTAN
     Dosage: AFTER BREAKFAST AND EVENING MEAL
  64. SACUBITRIL\VALSARTAN [Concomitant]
     Active Substance: SACUBITRIL\VALSARTAN
     Dosage: AFTER BREAKFAST AND EVENING MEAL
  65. NIFEDIPINE [Concomitant]
     Active Substance: NIFEDIPINE
     Dosage: AFTER BREAKFAST AND EVENING MEAL
  66. NIFEDIPINE [Concomitant]
     Active Substance: NIFEDIPINE
     Dosage: AFTER BREAKFAST AND EVENING MEAL

REACTIONS (3)
  - Sinus node dysfunction [Unknown]
  - Hyperkalaemia [Unknown]
  - Chronic kidney disease [Unknown]
